FAERS Safety Report 17841619 (Version 1)
Quarter: 2020Q2

REPORT INFORMATION
  Report Type: Spontaneous
  Country: AT (occurrence: AT)
  Receive Date: 20200529
  Receipt Date: 20200529
  Transmission Date: 20200714
  Serious: Yes (Other)
  Sender: FDA-Public Use
  Company Number: AT-PFIZER INC-2020211036

PATIENT
  Age: 58 Year

DRUGS (2)
  1. INLYTA [Suspect]
     Active Substance: AXITINIB
     Indication: METASTATIC RENAL CELL CARCINOMA
     Dosage: UNK
     Dates: start: 201603, end: 201606
  2. INLYTA [Suspect]
     Active Substance: AXITINIB
     Dosage: 7 MG
     Dates: start: 201606, end: 202002

REACTIONS (3)
  - Polyneuropathy [Unknown]
  - Sciatica [Unknown]
  - Neoplasm progression [Unknown]

NARRATIVE: CASE EVENT DATE: 201606
